FAERS Safety Report 11148971 (Version 2)
Quarter: 2015Q2

REPORT INFORMATION
  Report Type: Spontaneous
  Country: PT (occurrence: PT)
  Receive Date: 20150529
  Receipt Date: 20150603
  Transmission Date: 20150821
  Serious: Yes (Other)
  Sender: FDA-Public Use
  Company Number: PHHY2015PT063225

PATIENT
  Age: 42 Year
  Sex: Female

DRUGS (8)
  1. DULOXETINE [Concomitant]
     Active Substance: DULOXETINE
     Indication: MIGRAINE
     Route: 065
  2. CARBAMAZEPINE. [Suspect]
     Active Substance: CARBAMAZEPINE
     Indication: CHRONIC PAROXYSMAL HEMICRANIA
     Route: 065
  3. LEVETIRACETAM. [Suspect]
     Active Substance: LEVETIRACETAM
     Indication: CHRONIC PAROXYSMAL HEMICRANIA
     Route: 065
  4. TOPIRAMATE. [Suspect]
     Active Substance: TOPIRAMATE
     Indication: CHRONIC PAROXYSMAL HEMICRANIA
     Route: 065
  5. PREGABALINE [Concomitant]
     Active Substance: PREGABALIN
     Indication: CHRONIC PAROXYSMAL HEMICRANIA
     Route: 065
  6. INDOMETHACIN. [Suspect]
     Active Substance: INDOMETHACIN
     Indication: CHRONIC PAROXYSMAL HEMICRANIA
     Route: 065
  7. SODIUM VALPROATE [Concomitant]
     Active Substance: VALPROATE SODIUM
     Indication: CHRONIC PAROXYSMAL HEMICRANIA
     Route: 065
  8. AMITRIPTYLINE [Concomitant]
     Active Substance: AMITRIPTYLINE
     Indication: MIGRAINE
     Route: 065

REACTIONS (2)
  - Autoimmune pancreatitis [Unknown]
  - Condition aggravated [Unknown]

NARRATIVE: CASE EVENT DATE: 2009
